FAERS Safety Report 7005577-8 (Version None)
Quarter: 2010Q3

REPORT INFORMATION
  Report Type: 
  Country: None (occurrence: None)
  Receive Date: 20100921
  Receipt Date: 20100915
  Transmission Date: 20110219
  Serious: Yes (Hospitalization)
  Sender: FDA-Public Use
  Company Number: A0844290A

PATIENT
  Age: 60 Year
  Sex: Female
  Weight: 93.2 kg

DRUGS (5)
  1. AVANDIA [Suspect]
     Route: 048
     Dates: start: 20040101, end: 20060101
  2. AVANDARYL [Suspect]
     Indication: DIABETES MELLITUS
     Route: 048
  3. ZELNORM [Concomitant]
  4. CLONIDINE [Concomitant]
  5. DIOVAN [Concomitant]

REACTIONS (4)
  - CARDIAC FAILURE CONGESTIVE [None]
  - ILL-DEFINED DISORDER [None]
  - RENAL DISORDER [None]
  - RENAL FAILURE CHRONIC [None]
